FAERS Safety Report 14228097 (Version 7)
Quarter: 2021Q1

REPORT INFORMATION
  Report Type: Report from Study
  Country: US (occurrence: US)
  Receive Date: 20171127
  Receipt Date: 20210122
  Transmission Date: 20210419
  Serious: Yes (Other)
  Sender: FDA-Public Use
  Company Number: US-JAZZ-2017-US-015576

PATIENT
  Sex: Female

DRUGS (2)
  1. XYREM [Suspect]
     Active Substance: SODIUM OXYBATE
     Indication: NARCOLEPSY
     Dosage: 2.25 G, BID
     Route: 048
     Dates: start: 201710, end: 201711
  2. XYREM [Suspect]
     Active Substance: SODIUM OXYBATE
     Indication: CATAPLEXY
     Dosage: UNKNOWN DOSE
     Route: 048

REACTIONS (7)
  - Hypertonic bladder [Unknown]
  - Hysterectomy [Unknown]
  - Unevaluable event [Unknown]
  - Upper-airway cough syndrome [Unknown]
  - Muscle rigidity [Unknown]
  - Mass [Not Recovered/Not Resolved]
  - Vaginal prolapse [Unknown]

NARRATIVE: CASE EVENT DATE: 2017
